FAERS Safety Report 10076377 (Version 1)
Quarter: 2014Q2

REPORT INFORMATION
  Report Type: Spontaneous
  Country: US (occurrence: None)
  Receive Date: 20140410
  Receipt Date: 20140410
  Transmission Date: 20141212
  Serious: Yes (Hospitalization)
  Sender: FDA-Public Use
  Company Number: UTC-046731

PATIENT
  Age: 78 Year
  Sex: Female
  Weight: 99.79 kg

DRUGS (1)
  1. REMODULIN (2.5 MILLIGRAM/MILLILITERS, INJECTION FOR INFUSION) (TREPROSTINIL SODIUM) [Suspect]
     Indication: PULMONARY ARTERIAL HYPERTENSION
     Dosage: 0.032 MCG, 1 IN 1 MIN INTRAVENOUS.
     Route: 042
     Dates: start: 20080307

REACTIONS (1)
  - Dyspnoea [None]
